FAERS Safety Report 11285995 (Version 2)
Quarter: 2015Q3

REPORT INFORMATION
  Report Type: Spontaneous
  Country: JP (occurrence: JP)
  Receive Date: 20150721
  Receipt Date: 20150810
  Transmission Date: 20151125
  Serious: Yes (Hospitalization)
  Sender: FDA-Public Use
  Company Number: JP-ROCHE-1610983

PATIENT
  Age: 45 Year
  Sex: Male

DRUGS (22)
  1. ZOLPIDEM TARTRATE. [Concomitant]
     Active Substance: ZOLPIDEM TARTRATE
     Route: 048
  2. INVEGA [Concomitant]
     Active Substance: PALIPERIDONE
     Route: 048
  3. SILECE [Concomitant]
     Active Substance: FLUNITRAZEPAM
     Route: 048
  4. ZYPREXA [Concomitant]
     Active Substance: OLANZAPINE
     Route: 048
  5. CYMBALTA [Concomitant]
     Active Substance: DULOXETINE HYDROCHLORIDE
     Route: 048
  6. LORAZEPAM. [Concomitant]
     Active Substance: LORAZEPAM
     Route: 048
  7. COPEGUS [Suspect]
     Active Substance: RIBAVIRIN
     Indication: CHRONIC HEPATITIS C
     Route: 048
     Dates: start: 20150626
  8. REBAMIPIDE [Concomitant]
     Active Substance: REBAMIPIDE
     Route: 048
  9. SENNOSIDE [Concomitant]
     Active Substance: SENNOSIDES
     Route: 048
  10. GENTACIN [Concomitant]
     Active Substance: GENTAMICIN SULFATE
     Route: 003
  11. URSODEOXYCHOLIC ACID [Concomitant]
     Active Substance: URSODIOL
     Route: 048
  12. CERCINE [Concomitant]
     Active Substance: DIAZEPAM
     Route: 048
  13. JANUVIA [Concomitant]
     Active Substance: SITAGLIPTIN PHOSPHATE
     Route: 048
  14. COPEGUS [Suspect]
     Active Substance: RIBAVIRIN
     Route: 048
     Dates: start: 20150702
  15. SEIBULE [Concomitant]
     Active Substance: MIGLITOL
     Route: 048
  16. METGLUCO [Concomitant]
     Active Substance: METFORMIN HYDROCHLORIDE
     Route: 048
  17. COPEGUS [Suspect]
     Active Substance: RIBAVIRIN
     Indication: CHRONIC HEPATITIS C
     Route: 048
     Dates: start: 20150701, end: 20150701
  18. SOVALDI [Suspect]
     Active Substance: SOFOSBUVIR
     Indication: PRODUCT USED FOR UNKNOWN INDICATION
     Dosage: DOSAGE IS UNCERTAIN.
     Route: 048
     Dates: start: 20150626
  19. LEVOTOMIN [Concomitant]
     Active Substance: LEVOMEPROMAZINE
     Route: 048
  20. EURODIN (JAPAN) [Concomitant]
     Route: 048
  21. AKINETON [Concomitant]
     Active Substance: BIPERIDEN HYDROCHLORIDE
     Route: 048
  22. AMOXAN [Concomitant]
     Active Substance: AMOXAPINE
     Route: 048

REACTIONS (2)
  - Rash erythematous [Unknown]
  - Muscular weakness [Recovered/Resolved]

NARRATIVE: CASE EVENT DATE: 20150627
